FAERS Safety Report 7991010-6 (Version None)
Quarter: 2011Q4

REPORT INFORMATION
  Report Type: 
  Country: None (occurrence: None)
  Receive Date: 20111219
  Receipt Date: 20111214
  Transmission Date: 20120403
  Serious: Yes (Other)
  Sender: FDA-Public Use
  Company Number: CA-ROCHE-1022307

PATIENT
  Sex: Female
  Weight: 63.56 kg

DRUGS (11)
  1. ALTACE [Concomitant]
  2. ASPIRIN [Concomitant]
  3. HYDREA [Concomitant]
     Dates: start: 20110304
  4. MABTHERA [Suspect]
     Indication: RHEUMATOID ARTHRITIS
     Route: 042
  5. FOLIC ACID [Concomitant]
  6. TYLENOL-500 [Concomitant]
  7. PREDNISONE TAB [Concomitant]
  8. PANTOPRAZOLE [Concomitant]
  9. VITAMIN C [Concomitant]
  10. LOSEC (CANADA) [Concomitant]
  11. MICARDIS [Concomitant]

REACTIONS (2)
  - DRY GANGRENE [None]
  - POLYCYTHAEMIA VERA [None]
